FAERS Safety Report 21159887 (Version 1)
Quarter: 2022Q3

REPORT INFORMATION
  Report Type: Spontaneous
  Country: CA (occurrence: None)
  Receive Date: 20220802
  Receipt Date: 20220802
  Transmission Date: 20221027
  Serious: Yes (Other)
  Sender: FDA-Public Use
  Company Number: CA-PFIZER INC-202201014663

PATIENT
  Age: 65 Year
  Sex: Female

DRUGS (3)
  1. METHOTREXATE [Suspect]
     Active Substance: METHOTREXATE
     Indication: Rheumatoid arthritis
     Route: 048
     Dates: start: 2011
  2. ALENDRONATE [Concomitant]
     Active Substance: ALENDRONATE SODIUM
     Route: 065
  3. HYRIMOZ [Concomitant]
     Active Substance: ADALIMUMAB-ADAZ
     Route: 065
     Dates: start: 202111, end: 20220726

REACTIONS (8)
  - Rheumatoid arthritis [Unknown]
  - Drug ineffective [Unknown]
  - Gait disturbance [Unknown]
  - Finger deformity [Unknown]
  - Grip strength decreased [Unknown]
  - Movement disorder [Unknown]
  - Neck pain [Unknown]
  - Loss of personal independence in daily activities [Unknown]
